FAERS Safety Report 15666338 (Version 2)
Quarter: 2018Q4

REPORT INFORMATION
  Report Type: Spontaneous
  Country: US (occurrence: US)
  Receive Date: 20181128
  Receipt Date: 20181221
  Transmission Date: 20190205
  Serious: Yes (Hospitalization)
  Sender: FDA-Public Use
  Company Number: US-ACTELION-A-NJ2018-182556

PATIENT
  Age: 5 Year
  Sex: Male

DRUGS (15)
  1. DEXMEDETOMIDINE. [Concomitant]
     Active Substance: DEXMEDETOMIDINE
     Dosage: TITRATED TO ADEQUATE SEDATION
     Dates: start: 20180118, end: 20180208
  2. FUROSEMIDE. [Concomitant]
     Active Substance: FUROSEMIDE
     Dosage: 1 MG, Q8
     Route: 042
     Dates: start: 20180128, end: 20180215
  3. EPINEPHRINE. [Concomitant]
     Active Substance: EPINEPHRINE
     Dosage: TITRATED TO MAINTAIN BP^S
     Dates: start: 20180131, end: 20180208
  4. CEFEPIME [Concomitant]
     Active Substance: CEFEPIME HYDROCHLORIDE
     Dosage: 680 MG, Q8
     Route: 042
     Dates: start: 20180127, end: 20180212
  5. HYDROCORTISONE. [Concomitant]
     Active Substance: HYDROCORTISONE
     Dosage: 16 MG, Q6HRS
     Route: 042
     Dates: start: 20180131, end: 20180212
  6. TREPROSTINIL. [Concomitant]
     Active Substance: TREPROSTINIL
     Dosage: 222 NG/KG, PER MIN
     Dates: start: 20180118
  7. VASOPRESSIN. [Concomitant]
     Active Substance: VASOPRESSIN
     Dosage: UNK
     Dates: start: 20180118, end: 20180131
  8. FENTANYL. [Concomitant]
     Active Substance: FENTANYL
     Dosage: UNK
     Dates: start: 20180118, end: 20180207
  9. ASPIRIN. [Concomitant]
     Active Substance: ASPIRIN
     Dosage: 81 MG, QD
     Dates: start: 20180118
  10. TPN [Concomitant]
     Active Substance: AMINO ACIDS\DEXTROSE\ELECTROLYTES NOS\SOYBEAN OIL
     Dosage: UNK
     Dates: start: 20180131, end: 20180210
  11. ROCURONIUM [Concomitant]
     Active Substance: ROCURONIUM BROMIDE
     Dosage: TITRATED TO MAINTAIN PARALYSIS
     Dates: start: 20180131, end: 20180201
  12. MIDAZOLAM [Concomitant]
     Active Substance: MIDAZOLAM HYDROCHLORIDE
     Dosage: UNK
     Dates: start: 20180118, end: 20180207
  13. VASOPRESSIN. [Concomitant]
     Active Substance: VASOPRESSIN
     Dosage: UNK
     Dates: start: 20180131, end: 20180201
  14. VANCOMYCIN [Concomitant]
     Active Substance: VANCOMYCIN
     Dosage: 205 MG, Q8
     Route: 042
     Dates: start: 20180127, end: 20180212
  15. TRACLEER [Suspect]
     Active Substance: BOSENTAN
     Indication: PULMONARY ARTERIAL HYPERTENSION
     Dosage: 31.25 MG, BID
     Route: 048
     Dates: start: 20180130

REACTIONS (5)
  - Ventricular septal defect [Unknown]
  - Aspartate aminotransferase abnormal [Recovered/Resolved]
  - Pulmonary hypertension [Unknown]
  - Liver function test increased [Recovered/Resolved]
  - Alanine aminotransferase abnormal [Recovered/Resolved]

NARRATIVE: CASE EVENT DATE: 20180205
